FAERS Safety Report 9415284 (Version 1)
Quarter: 2013Q3

REPORT INFORMATION
  Report Type: Spontaneous
  Country: NZ (occurrence: NZ)
  Receive Date: 20130723
  Receipt Date: 20130723
  Transmission Date: 20140515
  Serious: Yes (Other)
  Sender: FDA-Public Use
  Company Number: NZ-BAYER-2013-087086

PATIENT
  Age: 32 Year
  Sex: Female

DRUGS (1)
  1. JADELLE [Suspect]
     Indication: CONTRACEPTION
     Dosage: UNK
     Dates: start: 20121010, end: 20130710

REACTIONS (1)
  - Device dislocation [None]
